FAERS Safety Report 17395755 (Version 1)
Quarter: 2020Q1

REPORT INFORMATION
  Report Type: Spontaneous
  Country: US (occurrence: US)
  Receive Date: 20200206
  Receipt Date: 20200206
  Transmission Date: 20200409
  Serious: No
  Sender: FDA-Public Use
  Company Number: None

PATIENT
  Age: 31 Year
  Sex: Female

DRUGS (1)
  1. MIRENA [Suspect]
     Active Substance: LEVONORGESTREL
     Indication: CONTRACEPTION
     Dosage: ?          OTHER ROUTE:INTRAUTERINE?
     Route: 015
     Dates: start: 20171201, end: 20200206

REACTIONS (4)
  - Panic attack [None]
  - Depression [None]
  - Suicidal ideation [None]
  - Mood altered [None]

NARRATIVE: CASE EVENT DATE: 20180201
